FAERS Safety Report 10341786 (Version 1)
Quarter: 2014Q3

REPORT INFORMATION
  Report Type: Spontaneous
  Country: US (occurrence: None)
  Receive Date: 20140724
  Receipt Date: 20140724
  Transmission Date: 20150326
  Serious: No
  Sender: FDA-Public Use
  Company Number: None

PATIENT
  Age: 81 Year
  Sex: Male
  Weight: 74.5 kg

DRUGS (1)
  1. RISPERIDONE. [Suspect]
     Active Substance: RISPERIDONE
     Indication: BIPOLAR I DISORDER
     Route: 048
     Dates: start: 20140601, end: 20140603

REACTIONS (3)
  - Respiratory depression [None]
  - Failure to thrive [None]
  - Somnolence [None]

NARRATIVE: CASE EVENT DATE: 20140604
